FAERS Safety Report 8907240 (Version 1)
Quarter: 2012Q4

REPORT INFORMATION
  Report Type: 
  Country: US (occurrence: US)
  Receive Date: 20121113
  Receipt Date: 20121113
  Transmission Date: 20130627
  Serious: No
  Sender: FDA-Public Use
  Company Number: US-AMGEN-USASP2012010561

PATIENT
  Age: 37 Year
  Sex: Female
  Weight: 102 kg

DRUGS (25)
  1. ENBREL [Suspect]
     Indication: PRODUCT USED FOR UNKNOWN INDICATION
     Dosage: 50 mg, qwk
     Route: 058
  2. ENBREL [Suspect]
     Dosage: 50 mg, qwk
     Dates: start: 20120125
  3. CYMBALTA [Concomitant]
     Dosage: 20 mg, UNK
  4. SINGULAIR [Concomitant]
     Dosage: 10 mg, UNK
  5. XANAX [Concomitant]
     Dosage: 1 mg, UNK
  6. ZYRTEC [Concomitant]
     Dosage: 5 mg, UNK
  7. VISTARIL /00058402/ [Concomitant]
     Dosage: 25 mg, UNK
  8. NEURONTIN [Concomitant]
     Dosage: 100 mg, UNK
  9. SYNTHROID [Concomitant]
     Dosage: 88 mug, UNK
  10. NASONEX [Concomitant]
     Dosage: 50 mug, UNK
  11. GLUCOPHAGE [Concomitant]
     Dosage: 500 mg, UNK
  12. IMITREX                            /01044801/ [Concomitant]
     Dosage: 4 mg, UNK
  13. FERROUS SULFATE [Concomitant]
     Dosage: 325 mg, UNK
  14. PRILOSEC                           /00661201/ [Concomitant]
     Dosage: 10 mg, UNK
  15. SEROQUEL [Concomitant]
     Dosage: 100 mg, UNK
  16. NAMENDA [Concomitant]
     Dosage: 5 mg, UNK
  17. MULTIVITAMIN                       /00097801/ [Concomitant]
     Dosage: UNK
  18. ERRIN [Concomitant]
     Dosage: 0.35 mg, UNK
  19. MAGNESIUM [Concomitant]
     Dosage: 200 mg, UNK
  20. VITAMIN B 12 [Concomitant]
     Dosage: UNK
  21. FLEXERIL                           /00428402/ [Concomitant]
     Dosage: 5 mg, UNK
  22. PROAIR HFA [Concomitant]
     Dosage: UNK
  23. CALCIUM [Concomitant]
     Dosage: 500 mg, UNK
  24. VITAMIN C                          /00008001/ [Concomitant]
     Dosage: 500 mg, UNK
  25. FOLIC ACID [Concomitant]
     Dosage: UNK

REACTIONS (3)
  - Arthritis [Unknown]
  - Injection site erythema [Unknown]
  - Injection site pruritus [Unknown]
